FAERS Safety Report 5196749-6 (Version None)
Quarter: 2006Q4

REPORT INFORMATION
  Report Type: 
  Country: None (occurrence: None)
  Receive Date: 20061227
  Receipt Date: 20061211
  Transmission Date: 20070319
  Serious: Yes (Other)
  Sender: FDA-Public Use
  Company Number: 2006152670

PATIENT
  Age: 75 Year
  Sex: Male
  Weight: 94.3482 kg

DRUGS (5)
  1. LYRICA [Suspect]
     Indication: LIMB OPERATION
     Dosage: 150 MG (75 MG, 2 IN 1 D),ORAL
     Route: 048
     Dates: start: 20061128, end: 20061201
  2. ALL OTHER THERAPEUTIC PRODUCTS (ALL OTHER THERAPEUTIC PRODUCTS) [Concomitant]
  3. PERCOCET [Concomitant]
  4. DARVOCET (DEXTROPROPOXYPHENE NAPSILATE, PARACEMTAOL) [Concomitant]
  5. CYMBALTA [Concomitant]

REACTIONS (1)
  - URINARY INCONTINENCE [None]
